FAERS Safety Report 7589173-X (Version None)
Quarter: 2011Q2

REPORT INFORMATION
  Report Type: 
  Country: None (occurrence: None)
  Receive Date: 20110627
  Receipt Date: 20110615
  Transmission Date: 20111010
  Serious: Yes (Hospitalization)
  Sender: FDA-Public Use
  Company Number: UTC-007546

PATIENT
  Age: 75 Year
  Sex: Female

DRUGS (3)
  1. TRACLEER [Concomitant]
  2. TYVASO [Suspect]
     Indication: PULMONARY HYPERTENSION
     Dosage: 18 TO 54 MICROGRAMS (4 IN 1 D0, INHALATION
     Route: 055
     Dates: start: 20091202
  3. DIURETICS (DIURETICS) [Concomitant]

REACTIONS (2)
  - DYSPNOEA [None]
  - CHRONIC OBSTRUCTIVE PULMONARY DISEASE [None]
